FAERS Safety Report 12655001 (Version 1)
Quarter: 2016Q3

REPORT INFORMATION
  Report Type: Spontaneous
  Country: US (occurrence: US)
  Receive Date: 20160816
  Receipt Date: 20160816
  Transmission Date: 20161109
  Serious: Yes (Other)
  Sender: FDA-Public Use
  Company Number: US-DEPOMED, INC.-US-2016DEP011696

PATIENT

DRUGS (3)
  1. NUCYNTA [Suspect]
     Active Substance: TAPENTADOL HYDROCHLORIDE
     Indication: PAIN
  2. NUCYNTA [Suspect]
     Active Substance: TAPENTADOL HYDROCHLORIDE
     Indication: NEURALGIA
  3. NUCYNTA [Suspect]
     Active Substance: TAPENTADOL HYDROCHLORIDE
     Indication: ARTHRALGIA
     Dosage: 200 MG IN THE MORNING AND 100 MG AT NIGHT
     Route: 048
     Dates: start: 2014, end: 201604

REACTIONS (9)
  - Drug withdrawal syndrome [Unknown]
  - Wrist fracture [Recovered/Resolved]
  - Knee arthroplasty [Recovered/Resolved]
  - Paraesthesia [Unknown]
  - Pain [Unknown]
  - Oral discomfort [Unknown]
  - Product use issue [Recovered/Resolved]
  - Burning sensation [Unknown]
  - Insomnia [Unknown]

NARRATIVE: CASE EVENT DATE: 2014
